FAERS Safety Report 24292976 (Version 1)
Quarter: 2024Q3

REPORT INFORMATION
  Report Type: Spontaneous
  Country: US (occurrence: None)
  Receive Date: 20240906
  Receipt Date: 20240906
  Transmission Date: 20241016
  Serious: No
  Sender: DOMPE FARMACEUTICI
  Company Number: US-FARMAPROD-202308-202311-3344

PATIENT
  Sex: Female

DRUGS (7)
  1. OXERVATE [Suspect]
     Active Substance: CENEGERMIN-BKBJ
     Indication: Neurotrophic keratopathy
     Route: 047
     Dates: start: 20231031
  2. FEBUXOSTAT [Concomitant]
     Active Substance: FEBUXOSTAT
  3. LORATADINE [Concomitant]
     Active Substance: LORATADINE
  4. TELMISARTAN [Concomitant]
     Active Substance: TELMISARTAN
  5. ASPIRIN [Concomitant]
     Active Substance: ASPIRIN
  6. RABEPRAZOLE SODIUM [Concomitant]
     Active Substance: RABEPRAZOLE SODIUM
  7. NAPROXEN [Concomitant]
     Active Substance: NAPROXEN

REACTIONS (1)
  - Wrong technique in product usage process [Unknown]
